FAERS Safety Report 14854803 (Version 1)
Quarter: 2018Q2

REPORT INFORMATION
  Report Type: Spontaneous
  Country: US (occurrence: US)
  Receive Date: 20180507
  Receipt Date: 20180507
  Transmission Date: 20180711
  Serious: No
  Sender: FDA-Public Use
  Company Number: US-ROCHE-1905234

PATIENT
  Age: 78 Year
  Sex: Female

DRUGS (4)
  1. ESBRIET [Suspect]
     Active Substance: PIRFENIDONE
     Indication: IDIOPATHIC PULMONARY FIBROSIS
     Dosage: ONGOIG: YES, TOTAL DOSE: 801 MG
     Route: 048
     Dates: start: 20150330
  2. OFEV [Concomitant]
     Active Substance: NINTEDANIB
     Dosage: 1-100 MG
     Route: 048
  3. ESBRIET [Suspect]
     Active Substance: PIRFENIDONE
     Route: 048
     Dates: start: 20161212, end: 20170218
  4. ESBRIET [Suspect]
     Active Substance: PIRFENIDONE
     Indication: PULMONARY ARTERIAL HYPERTENSION
     Dosage: 2 CAPSULES 3 TIMES A DAY
     Route: 048

REACTIONS (3)
  - Diarrhoea [Unknown]
  - Ulcer [Unknown]
  - Weight decreased [Unknown]

NARRATIVE: CASE EVENT DATE: 20170309
